FAERS Safety Report 5212546-7 (Version None)
Quarter: 2006Q4

REPORT INFORMATION
  Report Type: 
  Country: None (occurrence: None)
  Receive Date: 20061130
  Receipt Date: 20060606
  Transmission Date: 20070319
  Serious: Yes (Disabling, Other)
  Sender: FDA-Public Use
  Company Number: WAES 0606USA00952

PATIENT
  Age: 61 Year
  Sex: Female

DRUGS (3)
  1. FOSAMAX [Suspect]
     Indication: OSTEOPOROSIS
     Dosage: 70 MG/WKY/PO
     Route: 048
     Dates: start: 20060105, end: 20060417
  2. CALCIUM CITRATE [Concomitant]
  3. VITAMIN D (UNSPECIFIED) [Concomitant]

REACTIONS (3)
  - BONE PAIN [None]
  - OSTEOMYELITIS [None]
  - OSTEONECROSIS [None]
